FAERS Safety Report 5200990-3 (Version None)
Quarter: 2006Q4

REPORT INFORMATION
  Report Type: 
  Country: None (occurrence: None)
  Receive Date: 20061226
  Receipt Date: 20061207
  Transmission Date: 20070319
  Serious: Yes (Other)
  Sender: FDA-Public Use
  Company Number: GAM-137-06-UK

PATIENT
  Age: 14 Year
  Sex: Female

DRUGS (2)
  1. OCTAGAM [Suspect]
     Indication: BONE MARROW TRANSPLANT
     Dosage: 22.5 G I.V.
     Route: 042
     Dates: start: 20060630
  2. OCTAGAM [Suspect]

REACTIONS (4)
  - HEPATITIS ACUTE [None]
  - HEPATITIS B [None]
  - POOR QUALITY DRUG ADMINISTERED [None]
  - THERAPEUTIC PRODUCT CONTAMINATION [None]
